FAERS Safety Report 14384310 (Version 1)
Quarter: 2018Q1

REPORT INFORMATION
  Report Type: Report from Study
  Country: US (occurrence: US)
  Receive Date: 20180115
  Receipt Date: 20180115
  Transmission Date: 20180509
  Serious: Yes (Other)
  Sender: FDA-Public Use
  Company Number: US-AMGEN-USASL2018003700

PATIENT
  Age: 79 Year
  Sex: Male

DRUGS (4)
  1. ZETIA [Concomitant]
     Active Substance: EZETIMIBE
     Dosage: UNK
  2. PLAVIX [Concomitant]
     Active Substance: CLOPIDOGREL BISULFATE
  3. VITAMINS [Concomitant]
     Active Substance: VITAMINS
  4. REPATHA [Suspect]
     Active Substance: EVOLOCUMAB
     Indication: TYPE IIA HYPERLIPIDAEMIA
     Dosage: 140 MG, Q2WK
     Route: 065

REACTIONS (15)
  - Depression [Unknown]
  - Blood cholesterol decreased [Unknown]
  - Pain [Unknown]
  - Injury associated with device [Unknown]
  - Somnolence [Unknown]
  - Fatigue [Unknown]
  - Anxiety [Unknown]
  - Nausea [Unknown]
  - Renal failure [Unknown]
  - Rhinorrhoea [Unknown]
  - Parkinson^s disease [Unknown]
  - Eating disorder [Unknown]
  - Myalgia [Unknown]
  - Influenza [Unknown]
  - Insomnia [Unknown]

NARRATIVE: CASE EVENT DATE: 201709
